FAERS Safety Report 6469547-0 (Version None)
Quarter: 2009Q4

REPORT INFORMATION
  Report Type: 
  Country: None (occurrence: None)
  Receive Date: 20091203
  Receipt Date: 20091125
  Transmission Date: 20100525
  Serious: Yes (Hospitalization)
  Sender: FDA-Public Use
  Company Number: US-GENENTECH-294581

PATIENT
  Sex: Female
  Weight: 110.9 kg

DRUGS (26)
  1. BLINDED BEVACIZUMAB [Suspect]
     Indication: OVARIAN CANCER
     Dosage: 1590 MG, Q21D
     Route: 042
     Dates: start: 20090922
  2. CARBOPLATIN [Suspect]
     Indication: OVARIAN CANCER
     Dosage: 1590 MG, Q21D
     Route: 042
     Dates: start: 20090922
  3. BLINDED GEMCITABINE [Suspect]
     Indication: OVARIAN CANCER
     Dosage: 1590 MG, Q21D
     Route: 042
     Dates: start: 20090922
  4. BLINDED PLACEBO [Suspect]
     Indication: OVARIAN CANCER
     Dosage: 1590 MG, Q21D
     Route: 042
     Dates: start: 20090922
  5. GEMCITABINE [Suspect]
     Indication: OVARIAN CANCER
     Dosage: 2120 MG, DAY1+8/Q3W
     Route: 042
     Dates: start: 20090922
  6. CARBOPLATIN [Suspect]
     Indication: OVARIAN CANCER
     Dosage: 364 MG, Q21D
     Route: 042
     Dates: start: 20090922
  7. DARVOCET [Concomitant]
     Indication: FIBROMYALGIA
     Dosage: UNK
     Route: 048
     Dates: start: 20040101
  8. DARVOCET [Concomitant]
     Indication: CATHETER SITE PAIN
  9. SKELAXIN [Concomitant]
     Indication: FIBROMYALGIA
     Dosage: UNK
     Dates: start: 20040101
  10. ATIVAN [Concomitant]
     Indication: NAUSEA
     Dosage: UNK
     Route: 048
     Dates: start: 20040101
  11. ATIVAN [Concomitant]
     Indication: ANXIETY
  12. EXCEDRIN EXTRA STRENGTH [Concomitant]
     Indication: BACK PAIN
     Dosage: UNK
     Route: 048
     Dates: start: 20090910
  13. EXCEDRIN EXTRA STRENGTH [Concomitant]
     Indication: CATHETER SITE PAIN
  14. LIDODERM [Concomitant]
     Indication: BACK PAIN
     Dosage: UNK
     Dates: start: 20090916
  15. TORADOL [Concomitant]
     Indication: BACK PAIN
     Dosage: UNK
     Dates: start: 20090914
  16. ATIVAN [Concomitant]
     Indication: DRUG USE FOR UNKNOWN INDICATION
     Dosage: 1 MG, UNK
     Route: 042
     Dates: start: 20090922
  17. DECADRON [Concomitant]
     Indication: DRUG USE FOR UNKNOWN INDICATION
     Dosage: 20 MG, UNK
     Route: 042
     Dates: start: 20090922
  18. ZOFRAN [Concomitant]
     Indication: DRUG USE FOR UNKNOWN INDICATION
     Dosage: 8 MG, UNK
     Route: 042
     Dates: start: 20090922
  19. BENADRYL [Concomitant]
     Indication: DRUG USE FOR UNKNOWN INDICATION
     Dosage: 25 MG, UNK
     Route: 042
     Dates: start: 20090922
  20. TYLENOL (CAPLET) [Concomitant]
     Indication: DRUG USE FOR UNKNOWN INDICATION
     Dosage: 650 MG, UNK
     Route: 048
     Dates: start: 20090922
  21. AMIFOSTINE [Concomitant]
     Indication: DRUG USE FOR UNKNOWN INDICATION
     Dosage: 500 MG, UNK
     Route: 042
     Dates: start: 20090922
  22. AMLODIPINE BESYLATE [Concomitant]
     Indication: HYPERTENSION
     Dosage: 25 MG, UNK
     Dates: start: 20091006
  23. PROCRIT [Concomitant]
     Indication: ANAEMIA
     Dosage: 40000 U, 1/WEEK
     Route: 058
     Dates: start: 20091103
  24. RED BLOOD CELLS [Concomitant]
     Indication: ANAEMIA
     Dosage: UNK
     Route: 042
     Dates: start: 20091116, end: 20091117
  25. NORVASC [Concomitant]
     Indication: HYPERTENSION
     Dosage: 25 MG, QD
     Route: 048
     Dates: start: 20091118, end: 20091118
  26. LASIX [Concomitant]
     Indication: DRUG USE FOR UNKNOWN INDICATION
     Dosage: 20 MG, PRN
     Route: 042
     Dates: start: 20091117, end: 20091120

REACTIONS (1)
  - ANAEMIA [None]
